FAERS Safety Report 6918093-6 (Version None)
Quarter: 2010Q3

REPORT INFORMATION
  Report Type: 
  Country: None (occurrence: None)
  Receive Date: 20100806
  Receipt Date: 20100723
  Transmission Date: 20110219
  Serious: Yes (Disabling)
  Sender: FDA-Public Use
  Company Number: GER/UKI/10/0012285

PATIENT
  Age: 70 Year
  Sex: Male

DRUGS (9)
  1. CLOPIDOGREL [Suspect]
     Indication: CHEST PAIN
     Dosage: 1 IN 1 D
  2. CIPROFLOXACIN [Suspect]
     Indication: CHALAZION
     Dosage: 750 MG, 2 IN 1 D, ORAL
     Route: 048
  3. ASPIRIN [Suspect]
     Indication: CHEST PAIN
  4. ERYTHROMYCIN [Suspect]
     Indication: CELLULITIS
     Dosage: 250 MG, 4 IN 1 D, ORAL
     Route: 048
  5. ERYTHROMYCIN [Suspect]
     Indication: CHALAZION
     Dosage: 250 MG, 4 IN 1 D, ORAL
     Route: 048
  6. METRONIDAZOLE [Suspect]
     Indication: CHALAZION
     Dosage: 400 MG, 3 IN 1 D, ORAL
     Route: 048
  7. WARFARIN SODIUM [Suspect]
     Indication: PULMONARY EMBOLISM
  8. TEICOPLANIN (TEICOPLANIN) [Suspect]
     Dosage: 400 MG, 1 IN 1 D, INTRAMUSCULAR
     Route: 030
  9. MEROPENEM [Suspect]
     Indication: CHALAZION
     Dosage: 2 GM, 2 IN 1 D, PARENTERAL
     Route: 051

REACTIONS (10)
  - CELLULITIS [None]
  - CHALAZION [None]
  - DECREASED APPETITE [None]
  - DRUG INEFFECTIVE [None]
  - DRUG INTERACTION [None]
  - HEADACHE [None]
  - HYPHAEMA [None]
  - NAUSEA [None]
  - PYREXIA [None]
  - VISUAL ACUITY REDUCED [None]
